FAERS Safety Report 11062597 (Version 1)
Quarter: 2015Q2

REPORT INFORMATION
  Report Type: Spontaneous
  Country: DE (occurrence: None)
  Receive Date: 20150422
  Receipt Date: 20150422
  Transmission Date: 20150821
  Serious: Yes (Life-Threatening, Hospitalization)
  Sender: FDA-Public Use
  Company Number: FK201501805

PATIENT
  Age: 72 Year
  Sex: Female
  Weight: 45 kg

DRUGS (9)
  1. METOPROLOL (METOPROLOL) [Concomitant]
     Active Substance: METOPROLOL
  2. XARELTO [Concomitant]
     Active Substance: RIVAROXABAN
  3. CEFUROXIME (CEFUROXIME) [Suspect]
     Active Substance: CEFUROXIME
     Indication: PNEUMONIA
     Dosage: (NOT OTHERWISE SPECIFIED)
     Route: 042
     Dates: start: 20150318
  4. PREDNISOLON (PREDNISOLONE) [Concomitant]
  5. VIGANTOLETTEN (COLECALCIFEROL) [Concomitant]
  6. MAGNESIUM (MAGNESIIUM) [Concomitant]
  7. IRBESARTAN (IRBESARTAN) [Concomitant]
     Active Substance: IRBESARTAN
  8. TORASEMID (TORASEMIDE) [Concomitant]
     Active Substance: TORSEMIDE
  9. ALLOPURINOL (ALLOPURINOL) [Concomitant]
     Active Substance: ALLOPURINOL

REACTIONS (6)
  - Agitation [None]
  - Hypotension [None]
  - Dyspnoea [None]
  - Generalised tonic-clonic seizure [None]
  - Pulmonary embolism [None]
  - Asphyxia [None]

NARRATIVE: CASE EVENT DATE: 20150318
